FAERS Safety Report 7247039-9 (Version None)
Quarter: 2011Q1

REPORT INFORMATION
  Report Type: 
  Country: None (occurrence: None)
  Receive Date: 20110127
  Receipt Date: 20110124
  Transmission Date: 20110831
  Serious: Yes (Other)
  Sender: FDA-Public Use
  Company Number: US-AMGEN AB-QUU443990

PATIENT
  Age: 65 Year
  Sex: Female
  Weight: 59.41 kg

DRUGS (7)
  1. VESICARE [Concomitant]
     Dosage: UNK UNK, QD
     Route: 048
  2. OCUVITE                            /01053801/ [Concomitant]
  3. ATARAX [Concomitant]
     Dosage: 10 UNK, UNK
  4. PROLIA [Suspect]
     Indication: OSTEOPOROSIS POSTMENOPAUSAL
     Dosage: 60 MG, Q6MO
     Route: 058
     Dates: start: 20100812
  5. PROLIA [Suspect]
     Dates: start: 20100101
  6. HYDROXYZINE [Concomitant]
     Dosage: UNK UNK, QWK
     Route: 048
  7. POSTURE D                          /00278001/ [Concomitant]

REACTIONS (3)
  - ABSCESS [None]
  - SKIN REACTION [None]
  - HERPES SIMPLEX [None]
